FAERS Safety Report 10214606 (Version 1)
Quarter: 2014Q2

REPORT INFORMATION
  Report Type: Spontaneous
  Country: MY (occurrence: MY)
  Receive Date: 20140603
  Receipt Date: 20140603
  Transmission Date: 20141212
  Serious: Yes (Other)
  Sender: FDA-Public Use
  Company Number: MY-VIIV HEALTHCARE LIMITED-B0998833A

PATIENT
  Age: 31 Year
  Sex: Male

DRUGS (6)
  1. LAMIVUDINE-HIV [Suspect]
     Indication: RETROVIRAL INFECTION
     Dosage: 300MG PER DAY
     Route: 065
  2. STOCRIN [Suspect]
     Indication: RETROVIRAL INFECTION
     Dosage: 600MG PER DAY
     Route: 065
  3. STAVUDINE [Suspect]
     Indication: RETROVIRAL INFECTION
     Dosage: 60MG PER DAY
     Route: 065
  4. ISONIAZID [Concomitant]
  5. RIFAMPICIN [Concomitant]
  6. ETHAMBUTOL [Concomitant]

REACTIONS (2)
  - Hepatitis [Unknown]
  - Drug reaction with eosinophilia and systemic symptoms [Unknown]
